FAERS Safety Report 4568403-2 (Version None)
Quarter: 2005Q1

REPORT INFORMATION
  Report Type: 
  Country: None (occurrence: None)
  Receive Date: 20050131
  Receipt Date: 20050117
  Transmission Date: 20050727
  Serious: Yes (Other)
  Sender: FDA-Public Use
  Company Number: FRWYE188809NOV04

PATIENT
  Age: 65 Year
  Sex: Female

DRUGS (2)
  1. BISOPROLOL FUMARATE AND HYDROCHLOROTHIAZIDE [Suspect]
     Dosage: 10 MG 1X PER 1 DAY
     Route: 048
     Dates: start: 20020101
  2. VASOCOCITROL (ASCORBIC ACID/CITROFLAVONOID/MAGNESIUM CARBONATE) [Concomitant]

REACTIONS (1)
  - PANCREATIC CARCINOMA [None]
